FAERS Safety Report 15019850 (Version 1)
Quarter: 2018Q2

REPORT INFORMATION
  Report Type: Spontaneous
  Country: DE (occurrence: DE)
  Receive Date: 20180618
  Receipt Date: 20180618
  Transmission Date: 20180711
  Serious: Yes (Hospitalization)
  Sender: FDA-Public Use
  Company Number: DE-TEVA-2018-DE-907713

PATIENT
  Age: 87 Year
  Sex: Male

DRUGS (10)
  1. PANTOPRAZOL [Concomitant]
     Active Substance: PANTOPRAZOLE SODIUM
     Dosage: 1-0-1-0
     Route: 065
  2. ALLOPURINOL. [Concomitant]
     Active Substance: ALLOPURINOL
     Dosage: 0-0-0.5-0
     Route: 065
  3. LACTULOSE. [Concomitant]
     Active Substance: LACTULOSE
     Dosage: 1-1-1-1, MESSBECHER
     Route: 065
  4. RAMIPRIL. [Concomitant]
     Active Substance: RAMIPRIL
     Dosage: 1-0-0-0
     Route: 065
  5. METOPROLOL. [Concomitant]
     Active Substance: METOPROLOL
     Dosage: 1-0-0-0
     Route: 065
  6. DOXEPIN [Suspect]
     Active Substance: DOXEPIN
     Dosage: NK
     Route: 065
  7. TAMSULOSIN [Concomitant]
     Active Substance: TAMSULOSIN
     Dosage: 1-0-0-0
     Route: 065
  8. SIMVASTATIN. [Concomitant]
     Active Substance: SIMVASTATIN
     Dosage: 0-0-1-0
     Route: 065
  9. FUROSEMID [Concomitant]
     Active Substance: FUROSEMIDE
     Dosage: 1-1-0-0
     Route: 065
  10. RIVAROXABAN [Concomitant]
     Active Substance: RIVAROXABAN
     Dosage: NK MG, 1-0-0-0

REACTIONS (3)
  - Loss of consciousness [Unknown]
  - Epilepsy [Unknown]
  - Seizure [Unknown]
